FAERS Safety Report 15678669 (Version 1)
Quarter: 2018Q4

REPORT INFORMATION
  Report Type: Spontaneous
  Country: US (occurrence: US)
  Receive Date: 20181130
  Receipt Date: 20181130
  Transmission Date: 20190205
  Serious: Yes (Other)
  Sender: FDA-Public Use
  Company Number: None

PATIENT
  Age: 42 Year
  Sex: Female
  Weight: 67.5 kg

DRUGS (3)
  1. CYMBALTA [Suspect]
     Active Substance: DULOXETINE HYDROCHLORIDE
     Indication: DEPRESSION
     Dates: start: 20080910, end: 20181125
  2. CYMBALTA [Suspect]
     Active Substance: DULOXETINE HYDROCHLORIDE
     Indication: FIBROMYALGIA
     Dates: start: 20080910, end: 20181125
  3. CYMBALTA [Suspect]
     Active Substance: DULOXETINE HYDROCHLORIDE
     Indication: POST-TRAUMATIC STRESS DISORDER
     Dates: start: 20080910, end: 20181125

REACTIONS (14)
  - Tremor [None]
  - Feeling cold [None]
  - Vomiting [None]
  - Nausea [None]
  - Headache [None]
  - Disturbance in attention [None]
  - Withdrawal syndrome [None]
  - Dizziness [None]
  - Morbid thoughts [None]
  - Pyrexia [None]
  - Histrionic personality disorder [None]
  - Sleep disorder [None]
  - Inability to afford medication [None]
  - Tachyphrenia [None]

NARRATIVE: CASE EVENT DATE: 20181125
